FAERS Safety Report 17679596 (Version 1)
Quarter: 2020Q2

REPORT INFORMATION
  Report Type: Report from Study
  Country: CA (occurrence: CA)
  Receive Date: 20200417
  Receipt Date: 20200417
  Transmission Date: 20200714
  Serious: Yes (Other)
  Sender: FDA-Public Use
  Company Number: CA-PFIZER INC-2020156284

PATIENT
  Sex: Male

DRUGS (7)
  1. PREDNISONE. [Concomitant]
     Active Substance: PREDNISONE
     Route: 065
  2. LEFLUNOMIDE. [Suspect]
     Active Substance: LEFLUNOMIDE
     Route: 065
  3. DESOXIMETASONE. [Concomitant]
     Active Substance: DESOXIMETASONE
     Route: 065
  4. XELJANZ [Concomitant]
     Active Substance: TOFACITINIB CITRATE
     Route: 065
  5. HYDROXYCHLOROQUINE SULFATE. [Concomitant]
     Active Substance: HYDROXYCHLOROQUINE SULFATE
     Route: 065
  6. METHOTREXATE SODIUM. [Suspect]
     Active Substance: METHOTREXATE SODIUM
     Dosage: UNK UNK, WEEKLY
     Route: 065
  7. FENTANYL. [Concomitant]
     Active Substance: FENTANYL
     Route: 065

REACTIONS (11)
  - Pain [Unknown]
  - Dizziness [Unknown]
  - Weight decreased [Unknown]
  - Disorientation [Unknown]
  - Gait disturbance [Unknown]
  - Therapeutic response decreased [Unknown]
  - General physical health deterioration [Unknown]
  - Diarrhoea [Unknown]
  - Fatigue [Unknown]
  - Poor quality sleep [Unknown]
  - Rheumatoid arthritis [Unknown]
